FAERS Safety Report 24690534 (Version 2)
Quarter: 2025Q2

REPORT INFORMATION
  Report Type: Report from Study
  Country: US (occurrence: US)
  Receive Date: 20241203
  Receipt Date: 20250627
  Transmission Date: 20250717
  Serious: No
  Sender: AVERITAS
  Company Number: US-GRUNENTHAL-2024-137278

PATIENT
  Sex: Female

DRUGS (2)
  1. QUTENZA [Suspect]
     Active Substance: CAPSAICIN
     Indication: Diabetic neuropathy
     Route: 061
  2. QUTENZA [Suspect]
     Active Substance: CAPSAICIN
     Route: 061

REACTIONS (2)
  - Burning sensation [Unknown]
  - Pain [Unknown]
